APPROVED DRUG PRODUCT: ACYCLOVIR
Active Ingredient: ACYCLOVIR
Strength: 200MG
Dosage Form/Route: CAPSULE;ORAL
Application: A212173 | Product #001 | TE Code: AB
Applicant: YILING PHARMACEUTICAL LTD
Approved: Sep 14, 2020 | RLD: No | RS: No | Type: RX